FAERS Safety Report 14553667 (Version 1)
Quarter: 2018Q1

REPORT INFORMATION
  Report Type: Spontaneous
  Country: ES (occurrence: ES)
  Receive Date: 20180220
  Receipt Date: 20180220
  Transmission Date: 20180509
  Serious: Yes (Death, Hospitalization)
  Sender: FDA-Public Use
  Company Number: ES-DSJP-DSE-2018-106022

PATIENT

DRUGS (1)
  1. LIXIANA [Suspect]
     Active Substance: EDOXABAN TOSYLATE
     Dosage: 30 MG, UNK
     Route: 048
     Dates: start: 20171009, end: 20171106

REACTIONS (1)
  - Ischaemic cerebral infarction [Fatal]

NARRATIVE: CASE EVENT DATE: 20171106
